FAERS Safety Report 6300699-9 (Version None)
Quarter: 2009Q3

REPORT INFORMATION
  Report Type: 
  Country: None (occurrence: None)
  Receive Date: 20090807
  Receipt Date: 20070717
  Transmission Date: 20100115
  Serious: Yes (Other)
  Sender: FDA-Public Use
  Company Number: US-ASTRAZENECA-2007UW01787

PATIENT
  Age: 35 Year
  Sex: Male
  Weight: 122.9 kg

DRUGS (16)
  1. SEROQUEL [Suspect]
     Indication: DEPRESSION
     Route: 048
     Dates: start: 19990801, end: 20060701
  2. SEROQUEL [Suspect]
     Route: 048
     Dates: start: 19990925
  3. ABILIFY [Concomitant]
     Dates: start: 20020101
  4. GEODON [Concomitant]
     Dates: start: 20020101
  5. PROZAC [Concomitant]
     Dates: start: 20040101
  6. CYMBALTA [Concomitant]
     Dates: start: 20070101
  7. TRIAMTERENE AND HYDROCHLOROTHIAZIDE [Concomitant]
     Dosage: STRENGTH 75/50
     Dates: start: 19990804
  8. LOTREL [Concomitant]
     Dosage: 5 / 10 1 QD
     Dates: start: 20000621
  9. DOCUSATE SODIUM [Concomitant]
     Dates: start: 19990804
  10. BAYCOL [Concomitant]
     Indication: LIPIDS
     Dates: start: 20000621
  11. ATENOLOL [Concomitant]
     Dates: start: 20000707
  12. ZYPREXA [Concomitant]
     Dates: start: 19990612, end: 19990927
  13. SYNTHROID [Concomitant]
     Route: 048
     Dates: start: 20000707
  14. DILTIAZEM [Concomitant]
     Route: 048
     Dates: start: 20000707
  15. AMBIEN [Concomitant]
     Dates: start: 20000621
  16. NORVASC [Concomitant]
     Dates: start: 19990902

REACTIONS (5)
  - DIABETES MELLITUS INADEQUATE CONTROL [None]
  - DIABETIC NEUROPATHY [None]
  - GOUT [None]
  - HYPERGLYCAEMIA [None]
  - TYPE 2 DIABETES MELLITUS [None]
